FAERS Safety Report 7638103-0 (Version None)
Quarter: 2011Q3

REPORT INFORMATION
  Report Type: 
  Country: None (occurrence: None)
  Receive Date: 20110727
  Receipt Date: 20110718
  Transmission Date: 20111222
  Serious: Yes (Other)
  Sender: FDA-Public Use
  Company Number: US-JNJFOC-20110707426

PATIENT
  Sex: Female

DRUGS (3)
  1. FENTANYL CITRATE [Suspect]
     Indication: PRODUCT USED FOR UNKNOWN INDICATION
     Route: 062
     Dates: start: 20110201
  2. DURAGESIC-100 [Suspect]
     Indication: SPINAL COLUMN STENOSIS
     Dosage: THREE 100UG/HR PLUS 25 UG/HR PATCH
     Route: 062
     Dates: end: 20110201
  3. DURAGESIC-100 [Suspect]
     Indication: SPINAL DISORDER
     Dosage: THREE 100UG/HR PLUS 25 UG/HR PATCH
     Route: 062
     Dates: end: 20110201

REACTIONS (6)
  - BONE DISORDER [None]
  - LIGAMENT DISORDER [None]
  - HYPERHIDROSIS [None]
  - TENDON DISORDER [None]
  - PAIN [None]
  - BURSA DISORDER [None]
